FAERS Safety Report 25706398 (Version 1)
Quarter: 2025Q3

REPORT INFORMATION
  Report Type: Spontaneous
  Country: US (occurrence: US)
  Receive Date: 20250820
  Receipt Date: 20250820
  Transmission Date: 20251021
  Serious: No
  Sender: CATALYST PHARMA
  Company Number: US-CATALYST PHARMACEUTICALS-US-CATA-25-01085

PATIENT
  Sex: Male
  Weight: 28.594 kg

DRUGS (5)
  1. AGAMREE [Suspect]
     Active Substance: VAMOROLONE
     Indication: Duchenne muscular dystrophy
     Dosage: 4.3ML DAILY
     Route: 048
     Dates: start: 20250702
  2. VITAMIN D3 [Concomitant]
     Active Substance: CHOLECALCIFEROL
     Indication: Bone disorder
     Dosage: 2000 UNITS DAILY
     Route: 065
  3. VITAMIN D3 [Concomitant]
     Active Substance: CHOLECALCIFEROL
     Indication: Prophylaxis
  4. ECHINACEA-GOLDENSEAL [Concomitant]
     Indication: Immune disorder prophylaxis
     Route: 048
  5. CVS MULTIVITAMIN GUMMY KIDS [Concomitant]
     Indication: Hypovitaminosis
     Dosage: ONE GUMMY DAILY
     Route: 065

REACTIONS (11)
  - Balance disorder [Unknown]
  - Fall [Unknown]
  - Emotional disorder [Unknown]
  - Crying [Unknown]
  - Photophobia [Unknown]
  - Pain in extremity [Not Recovered/Not Resolved]
  - Muscle spasms [Not Recovered/Not Resolved]
  - Middle insomnia [Recovering/Resolving]
  - Asthenia [Recovered/Resolved]
  - Aggression [Recovered/Resolved]
  - Behaviour disorder [Recovered/Resolved]

NARRATIVE: CASE EVENT DATE: 20250101
